FAERS Safety Report 18160138 (Version 1)
Quarter: 2020Q3

REPORT INFORMATION
  Report Type: Report from Study
  Country: FR (occurrence: FR)
  Receive Date: 20200818
  Receipt Date: 20200818
  Transmission Date: 20201103
  Serious: Yes (Other)
  Sender: FDA-Public Use
  Company Number: FR-AUROBINDO-AUR-APL-2018-001696

PATIENT
  Age: 27 Week
  Sex: Male
  Weight: 4.62 kg

DRUGS (2)
  1. FUROSEMIDE. [Suspect]
     Active Substance: FUROSEMIDE
     Indication: PRODUCT USED FOR UNKNOWN INDICATION
     Dosage: UNK
     Route: 065
  2. CERNEVIT [Suspect]
     Active Substance: VITAMINS
     Indication: VITAMIN D DEFICIENCY
     Dosage: UNK
     Route: 065

REACTIONS (3)
  - Hypercalciuria [Unknown]
  - Overdose [Unknown]
  - Nephrocalcinosis [Recovered/Resolved]
